FAERS Safety Report 10191100 (Version 1)
Quarter: 2014Q2

REPORT INFORMATION
  Report Type: Spontaneous
  Country: FR (occurrence: FR)
  Receive Date: 20140523
  Receipt Date: 20140523
  Transmission Date: 20141212
  Serious: Yes (Hospitalization)
  Sender: FDA-Public Use
  Company Number: FR-ELI_LILLY_AND_COMPANY-FR201405005105

PATIENT
  Age: 69 Year
  Sex: Female

DRUGS (7)
  1. CYMBALTA [Suspect]
     Indication: DEPRESSION
     Dosage: UNK, QD
     Route: 048
     Dates: start: 20140127, end: 20140221
  2. PRAVASTATIN /00880402/ [Suspect]
     Indication: HYPERCHOLESTEROLAEMIA
     Dosage: UNK, QD
     Route: 048
     Dates: start: 20140127, end: 20140225
  3. ABILIFY [Suspect]
     Indication: SCHIZOPHRENIA
     Dosage: UNK, QD
     Route: 048
     Dates: start: 20140210, end: 20140221
  4. IMOVANE [Suspect]
     Indication: INSOMNIA
     Dosage: UNK, QD
     Route: 048
     Dates: start: 20140213, end: 20140221
  5. DOLIPRANE [Suspect]
     Indication: PYREXIA
     Dosage: 500 MG, TID
     Route: 048
     Dates: end: 20140221
  6. SECTRAL [Concomitant]
     Dosage: 200 MG, UNK
  7. KARDEGIC [Concomitant]
     Dosage: 75 MG, UNK
     Route: 048

REACTIONS (1)
  - Drug-induced liver injury [Recovered/Resolved]
